FAERS Safety Report 4545829-4 (Version None)
Quarter: 2005Q1

REPORT INFORMATION
  Report Type: 
  Country: None (occurrence: None)
  Receive Date: 20050103
  Receipt Date: 20041221
  Transmission Date: 20050727
  Serious: Yes (Life-Threatening, Other)
  Sender: FDA-Public Use
  Company Number: 2004082357

PATIENT
  Sex: Female

DRUGS (1)
  1. DILANTIN KAPSEAL [Suspect]
     Indication: CONVULSION
     Dosage: ORAL
     Route: 048

REACTIONS (11)
  - ANTICONVULSANT DRUG LEVEL INCREASED [None]
  - AURA [None]
  - BRAIN NEOPLASM [None]
  - CONVULSION [None]
  - DRUG TOXICITY [None]
  - GRAND MAL CONVULSION [None]
  - INCOHERENT [None]
  - MIGRAINE [None]
  - NAUSEA [None]
  - STRESS [None]
  - VOMITING [None]
